FAERS Safety Report 10313243 (Version 1)
Quarter: 2014Q3

REPORT INFORMATION
  Report Type: Spontaneous
  Country: US (occurrence: None)
  Receive Date: 20140717
  Receipt Date: 20140717
  Transmission Date: 20150326
  Serious: Yes (Other)
  Sender: FDA-Public Use
  Company Number: None

PATIENT
  Age: 50 Year
  Sex: Female
  Weight: 72.58 kg

DRUGS (1)
  1. AVELOX [Suspect]
     Active Substance: MOXIFLOXACIN HYDROCHLORIDE
     Indication: SINUSITIS
     Dosage: 1 TABLET FOR 10 YEARS , ONCE DAILY
     Route: 048
     Dates: start: 20140711, end: 20140715

REACTIONS (12)
  - Dizziness [None]
  - Pyrexia [None]
  - Dry mouth [None]
  - Chills [None]
  - Decreased appetite [None]
  - Heart rate increased [None]
  - Hyperhidrosis [None]
  - Nausea [None]
  - Flushing [None]
  - Mental impairment [None]
  - Restlessness [None]
  - Fear [None]

NARRATIVE: CASE EVENT DATE: 20140716
